FAERS Safety Report 24311176 (Version 1)
Quarter: 2024Q3

REPORT INFORMATION
  Report Type: Spontaneous
  Country: GB (occurrence: GB)
  Receive Date: 20240912
  Receipt Date: 20240912
  Transmission Date: 20241017
  Serious: Yes (Death, Hospitalization)
  Sender: ABBVIE
  Company Number: GB-ABBVIE-5917415

PATIENT
  Age: 70 Year
  Sex: Female

DRUGS (1)
  1. BOTOX COSMETIC [Suspect]
     Active Substance: ONABOTULINUMTOXINA
     Indication: Hypertonic bladder
     Dosage: TIME INTERVAL: AS NECESSARY
     Route: 065
     Dates: start: 202407, end: 202407

REACTIONS (4)
  - Kidney infection [Fatal]
  - Renal failure [Fatal]
  - Tubulointerstitial nephritis [Fatal]
  - Autoimmune disorder [Fatal]

NARRATIVE: CASE EVENT DATE: 20240801
